FAERS Safety Report 7166640-4 (Version None)
Quarter: 2010Q4

REPORT INFORMATION
  Report Type: 
  Country: None (occurrence: None)
  Receive Date: 20101216
  Receipt Date: 20101012
  Transmission Date: 20110411
  Serious: Yes (Death, Other)
  Sender: FDA-Public Use
  Company Number: GB-NOVOPROD-317954

PATIENT
  Age: 25 Year
  Sex: Male

DRUGS (1)
  1. INSULATARDA? PENFILLA? HM(GE) 3 ML [Suspect]
     Indication: OFF LABEL USE
     Dosage: 1200 U, SINGLE
     Route: 042

REACTIONS (3)
  - BLOOD INSULIN INCREASED [None]
  - INTENTIONAL DRUG MISUSE [None]
  - VICTIM OF HOMICIDE [None]
